FAERS Safety Report 11363732 (Version 2)
Quarter: 2015Q3

REPORT INFORMATION
  Report Type: Spontaneous
  Country: JP (occurrence: JP)
  Receive Date: 20150811
  Receipt Date: 20150828
  Transmission Date: 20151125
  Serious: Yes (Death)
  Sender: FDA-Public Use
  Company Number: JP-ROCHE-1620176

PATIENT
  Age: 58 Year
  Sex: Male

DRUGS (1)
  1. MIRCERA [Suspect]
     Active Substance: METHOXY POLYETHYLENE GLYCOL-EPOETIN BETA
     Indication: NEPHROGENIC ANAEMIA
     Dosage: DOSAGE IS UNCERTAIN.?LAST DOSE ON 14/MAR/2015.
     Route: 058

REACTIONS (4)
  - Asphyxia [Fatal]
  - General physical health deterioration [Unknown]
  - Aspiration [Fatal]
  - Sepsis [Fatal]

NARRATIVE: CASE EVENT DATE: 20150620
